FAERS Safety Report 23613138 (Version 1)
Quarter: 2024Q1

REPORT INFORMATION
  Report Type: Spontaneous
  Country: GB (occurrence: GB)
  Receive Date: 20240308
  Receipt Date: 20240308
  Transmission Date: 20240410
  Serious: Yes (Other)
  Sender: FDA-Public Use
  Company Number: GB-JAZZ PHARMACEUTICALS-2023-GB-025225

PATIENT
  Age: 62 Year
  Sex: Male

DRUGS (1)
  1. XYREM [Suspect]
     Active Substance: SODIUM OXYBATE
     Indication: Narcolepsy
     Dosage: 3 GRAM, TID
     Dates: start: 20231003, end: 20231114

REACTIONS (4)
  - Cataplexy [Not Recovered/Not Resolved]
  - Product taste abnormal [Unknown]
  - Product packaging difficult to open [Unknown]
  - Off label use [Unknown]

NARRATIVE: CASE EVENT DATE: 20231009
